FAERS Safety Report 9483161 (Version 2)
Quarter: 2013Q3

REPORT INFORMATION
  Report Type: Report from Study
  Country: US (occurrence: US)
  Receive Date: 20130828
  Receipt Date: 20130828
  Transmission Date: 20140515
  Serious: Yes (Hospitalization, Other)
  Sender: FDA-Public Use
  Company Number: US-ABBOTT-13P-163-1131071-00

PATIENT
  Age: 61 Year
  Sex: Male

DRUGS (10)
  1. HUMIRA [Suspect]
     Indication: CROHN^S DISEASE
     Dates: start: 20130610
  2. HUMIRA [Suspect]
     Dates: start: 20130823
  3. STEROIDS [Suspect]
     Indication: PRODUCT USED FOR UNKNOWN INDICATION
  4. DEILZICOL [Concomitant]
     Indication: PRODUCT USED FOR UNKNOWN INDICATION
  5. XANAX [Concomitant]
     Indication: ANXIETY
     Dosage: TWICE DAILY
  6. ALBUTEROL [Concomitant]
     Indication: CHRONIC OBSTRUCTIVE PULMONARY DISEASE
     Route: 055
  7. ALBUTEROL SULFATE [Concomitant]
     Indication: PRODUCT USED FOR UNKNOWN INDICATION
     Route: 055
  8. ADVIL [Concomitant]
     Indication: PRODUCT USED FOR UNKNOWN INDICATION
  9. PREVACID [Concomitant]
     Indication: DYSPEPSIA
  10. ALIGN [Concomitant]
     Indication: CROHN^S DISEASE

REACTIONS (4)
  - Delirium [Recovering/Resolving]
  - Crohn^s disease [Unknown]
  - Gastric lavage [Recovering/Resolving]
  - Gastrointestinal inflammation [Recovering/Resolving]
